FAERS Safety Report 4551807-1 (Version None)
Quarter: 2005Q1

REPORT INFORMATION
  Report Type: 
  Country: None (occurrence: None)
  Receive Date: 20050110
  Receipt Date: 20050103
  Transmission Date: 20050727
  Serious: Yes (Hospitalization)
  Sender: FDA-Public Use
  Company Number: 2004109569

PATIENT
  Age: 67 Year
  Sex: Female

DRUGS (7)
  1. TAHOR (ATORVASTATIN) [Suspect]
     Indication: ILL-DEFINED DISORDER
     Dosage: 1 IN 1 D, ORAL
     Route: 048
     Dates: end: 20040101
  2. ALLOPURINOL [Suspect]
     Indication: ILL-DEFINED DISORDER
     Dosage: 1 IN 1 D, ORAL
     Route: 048
     Dates: end: 20040101
  3. COLCHICINE/OPIUM/TIEMONIUM (COLCHICINE, OPIUM, TIEMONIUM METHYLSULPHAT [Suspect]
     Indication: ILL-DEFINED DISORDER
     Dosage: 1 IN 1 D, ORAL
     Route: 048
     Dates: end: 20040925
  4. ACETYLSALICYLIC ACID SRT [Suspect]
     Indication: ILL-DEFINED DISORDER
     Dosage: 160 MG, 1 IN 1 D,  ORAL
     Route: 048
     Dates: end: 20040101
  5. FOSINOPRIL SODIUM [Suspect]
     Indication: ILL-DEFINED DISORDER
     Dosage: 20 MG, 1 IN 1 D, ORAL
     Route: 048
     Dates: end: 20040101
  6. CARVEDILOL [Concomitant]
  7. FUROSEMIDE [Concomitant]

REACTIONS (3)
  - DISSEMINATED INTRAVASCULAR COAGULATION [None]
  - DRUG RASH WITH EOSINOPHILIA AND SYSTEMIC SYMPTOMS [None]
  - RENAL FAILURE [None]
